FAERS Safety Report 11809066 (Version 1)
Quarter: 2015Q4

REPORT INFORMATION
  Report Type: Report from Study
  Country: US (occurrence: US)
  Receive Date: 20151207
  Receipt Date: 20151207
  Transmission Date: 20160305
  Serious: Yes (Hospitalization, Other)
  Sender: FDA-Public Use
  Company Number: US-009507513-1512USA002566

PATIENT
  Age: 38 Year
  Sex: Male
  Weight: 75.4 kg

DRUGS (2)
  1. CRIZOTINIB [Concomitant]
     Active Substance: CRIZOTINIB
     Dosage: UNK
     Dates: end: 20151107
  2. HEXADROL [Suspect]
     Active Substance: DEXAMETHASONE
     Indication: METASTASES TO CENTRAL NERVOUS SYSTEM
     Dosage: 4 MG, BID
     Route: 048
     Dates: start: 20151106, end: 20151120

REACTIONS (3)
  - Head discomfort [Recovering/Resolving]
  - Seizure [Not Recovered/Not Resolved]
  - Headache [Recovering/Resolving]

NARRATIVE: CASE EVENT DATE: 20151119
